FAERS Safety Report 5344116-4 (Version None)
Quarter: 2007Q2

REPORT INFORMATION
  Report Type: 
  Country: None (occurrence: None)
  Receive Date: 20070604
  Receipt Date: 20070523
  Transmission Date: 20071010
  Serious: Yes (Other)
  Sender: FDA-Public Use
  Company Number: US-GENENTECH-234217

PATIENT
  Sex: Female

DRUGS (3)
  1. RITUXAN [Suspect]
     Indication: NON-HODGKIN'S LYMPHOMA
     Dosage: 375 MG/M2, 1/WEEK
     Route: 042
     Dates: start: 20020401
  2. RITUXAN [Suspect]
     Dosage: 375 MG/M2, 1/WEEK
     Route: 042
  3. RITUXAN [Suspect]
     Dosage: 375 MG/M2, UNK
     Route: 042
     Dates: start: 20060101

REACTIONS (4)
  - BLINDNESS [None]
  - BLINDNESS UNILATERAL [None]
  - NEOPLASM RECURRENCE [None]
  - NERVE COMPRESSION [None]
